FAERS Safety Report 7621117-4 (Version None)
Quarter: 2011Q3

REPORT INFORMATION
  Report Type: 
  Country: None (occurrence: None)
  Receive Date: 20110719
  Receipt Date: 20110715
  Transmission Date: 20111222
  Serious: Yes (Life-Threatening)
  Sender: FDA-Public Use
  Company Number: CA-SHIONOGI, INC-2011000082

PATIENT

DRUGS (4)
  1. TWINJECT 0.3 [Suspect]
     Indication: HYPERSENSITIVITY
     Dosage: 0.3 MG AS NEEDED
  2. UNSPECIFIED INHALER FOR CHRONIC ASTHMA UNKNOWN [Concomitant]
  3. OXYGEN UNKNOWN [Concomitant]
  4. UNSPECIFIED INHALER FOR COPD UNKNOWN [Concomitant]

REACTIONS (2)
  - PRODUCT QUALITY ISSUE [None]
  - DEVICE MALFUNCTION [None]
